FAERS Safety Report 24423567 (Version 2)
Quarter: 2024Q4

REPORT INFORMATION
  Report Type: Spontaneous
  Country: KZ (occurrence: KZ)
  Receive Date: 20241010
  Receipt Date: 20241115
  Transmission Date: 20250115
  Serious: Yes (Hospitalization)
  Sender: TEVA
  Company Number: KZ-TEVA-VS-3251894

PATIENT
  Age: 37 Year
  Sex: Female

DRUGS (1)
  1. DICLOFENAC [Suspect]
     Active Substance: DICLOFENAC
     Indication: Product used for unknown indication
     Dosage: DOSAGE: AMPOULES, 75 MG/2ML, DICLOFENAC TEVA
     Route: 065
     Dates: start: 20240925, end: 20240925

REACTIONS (4)
  - Asphyxia [Unknown]
  - Erythema [Unknown]
  - Tremor [Unknown]
  - Pruritus [Unknown]

NARRATIVE: CASE EVENT DATE: 20240925
